FAERS Safety Report 7636771-0 (Version None)
Quarter: 2011Q3

REPORT INFORMATION
  Report Type: 
  Country: None (occurrence: None)
  Receive Date: 20110726
  Receipt Date: 20110718
  Transmission Date: 20111222
  Serious: Yes (Hospitalization)
  Sender: FDA-Public Use
  Company Number: US-ABBOTT-11P-163-0840383-00

PATIENT
  Sex: Male
  Weight: 117.59 kg

DRUGS (9)
  1. NIASPAN [Suspect]
     Indication: BLOOD CHOLESTEROL INCREASED
  2. COREG [Concomitant]
     Indication: HYPERTENSION
  3. LASIX [Concomitant]
     Indication: FLUID RETENTION
  4. ASPIRIN [Concomitant]
     Indication: CARDIAC DISORDER
  5. SIMCOR [Suspect]
     Indication: PRODUCT USED FOR UNKNOWN INDICATION
     Dates: start: 20110716
  6. ENALAPRIL MALEATE [Concomitant]
     Indication: HYPERTENSION
  7. WARFARIN [Concomitant]
     Indication: ANTICOAGULANT THERAPY
  8. NIASPAN [Suspect]
     Dates: end: 20110715
  9. SPIRONOLACTONE [Concomitant]
     Indication: FLUID RETENTION

REACTIONS (3)
  - FLUSHING [None]
  - CARDIAC FAILURE [None]
  - DIZZINESS [None]
